FAERS Safety Report 4405445-1 (Version None)
Quarter: 2004Q3

REPORT INFORMATION
  Report Type: 
  Country: None (occurrence: None)
  Receive Date: 20040723
  Receipt Date: 20030826
  Transmission Date: 20050211
  Serious: No
  Sender: FDA-Public Use
  Company Number: US-GLAXOSMITHKLINE-A0423617A

PATIENT
  Age: 72 Year
  Sex: Female

DRUGS (6)
  1. AVANDIA [Suspect]
     Dosage: 2MG PER DAY
     Route: 048
     Dates: start: 20030701
  2. DESYREL [Concomitant]
  3. LANOXIN [Concomitant]
  4. GLYBURIDE [Concomitant]
  5. FELDENE [Concomitant]
  6. LOTENSIN [Suspect]
     Indication: ILL-DEFINED DISORDER
     Route: 065
     Dates: start: 20030701

REACTIONS (2)
  - BLOOD PRESSURE INCREASED [None]
  - HEART RATE IRREGULAR [None]
